FAERS Safety Report 21355695 (Version 1)
Quarter: 2022Q3

REPORT INFORMATION
  Report Type: Spontaneous
  Country: US (occurrence: None)
  Receive Date: 20220920
  Receipt Date: 20220920
  Transmission Date: 20221026
  Serious: Yes (Death)
  Sender: FDA-Public Use
  Company Number: None

PATIENT
  Age: 71 Year
  Sex: Male
  Weight: 79.5 kg

DRUGS (2)
  1. TAXOTERE [Suspect]
     Active Substance: DOCETAXEL
     Dates: end: 20220831
  2. RAMUCIRUMAB [Suspect]
     Active Substance: RAMUCIRUMAB
     Dates: end: 20220831

REACTIONS (4)
  - Malaise [None]
  - Fatigue [None]
  - Hypophagia [None]
  - Refusal of treatment by patient [None]

NARRATIVE: CASE EVENT DATE: 20220911
